FAERS Safety Report 19429693 (Version 1)
Quarter: 2021Q2

REPORT INFORMATION
  Report Type: Spontaneous
  Country: CL (occurrence: CL)
  Receive Date: 20210617
  Receipt Date: 20210617
  Transmission Date: 20210717
  Serious: Yes (Other)
  Sender: FDA-Public Use
  Company Number: CL-BAYER-2021-156180

PATIENT
  Age: 36 Year
  Sex: Female

DRUGS (1)
  1. MIRENA [Suspect]
     Active Substance: LEVONORGESTREL
     Indication: ENDOMETRIOSIS
     Dosage: 20?G PER DAY, CONTINUOUSLY
     Route: 015
     Dates: start: 20210526, end: 20210526

REACTIONS (9)
  - Bradycardia [Recovered/Resolved]
  - Procedural pain [Recovered/Resolved]
  - Herpes virus infection [Recovered/Resolved]
  - Off label use [None]
  - Post procedural diarrhoea [Recovered/Resolved]
  - Procedural nausea [Recovered/Resolved]
  - Procedural hypotension [Recovered/Resolved]
  - Hypersensitivity [Recovered/Resolved]
  - Candida infection [Recovered/Resolved]

NARRATIVE: CASE EVENT DATE: 20210526
